FAERS Safety Report 4637924-6 (Version None)
Quarter: 2005Q2

REPORT INFORMATION
  Report Type: 
  Country: None (occurrence: None)
  Receive Date: 20050418
  Receipt Date: 20050316
  Transmission Date: 20051028
  Serious: Yes (Hospitalization)
  Sender: FDA-Public Use
  Company Number: JP-ROCHE-399515

PATIENT
  Age: 28 Year
  Sex: Female

DRUGS (3)
  1. TAMIFLU [Suspect]
     Indication: INFLUENZA
     Route: 048
     Dates: start: 20050217, end: 20050219
  2. TAMIFLU [Suspect]
     Route: 048
     Dates: start: 20050220, end: 20050220
  3. ACETAMINOPHEN [Concomitant]
     Route: 048
     Dates: start: 20050217

REACTIONS (1)
  - URTICARIA [None]
